FAERS Safety Report 8225057-1 (Version None)
Quarter: 2012Q1

REPORT INFORMATION
  Report Type: 
  Country: None (occurrence: None)
  Receive Date: 20120321
  Receipt Date: 20120307
  Transmission Date: 20120608
  Serious: Yes (Hospitalization)
  Sender: FDA-Public Use
  Company Number: PT-MYLANLABS-2012S1005114

PATIENT
  Age: 48 Year
  Sex: Female

DRUGS (2)
  1. FLUOXETINE [Suspect]
     Indication: DEPRESSION
     Route: 048
  2. SIBUTRAMINE HYDROCHLORIDE MONOHYDRATE [Suspect]
     Indication: DECREASED APPETITE

REACTIONS (3)
  - DRUG INTERACTION [None]
  - CEREBROVASCULAR SPASM [None]
  - SEROTONIN SYNDROME [None]
